FAERS Safety Report 12330912 (Version 1)
Quarter: 2016Q2

REPORT INFORMATION
  Report Type: Spontaneous
  Country: US (occurrence: None)
  Receive Date: 20160503
  Receipt Date: 20160503
  Transmission Date: 20160815
  Serious: Yes (Hospitalization)
  Sender: FDA-Public Use
  Company Number: None

PATIENT
  Age: 46 Year
  Sex: Male
  Weight: 131.59 kg

DRUGS (1)
  1. ATORVASTATIN [Suspect]
     Active Substance: ATORVASTATIN
     Indication: HYPERLIPIDAEMIA
     Route: 048
     Dates: start: 20140630, end: 20151130

REACTIONS (8)
  - Wheezing [None]
  - Oedema [None]
  - Blood creatine phosphokinase increased [None]
  - Blood creatine increased [None]
  - Proteinuria [None]
  - Dyspnoea [None]
  - Cough [None]
  - Blood urea increased [None]

NARRATIVE: CASE EVENT DATE: 20151130
